FAERS Safety Report 6046427-6 (Version None)
Quarter: 2009Q1

REPORT INFORMATION
  Report Type: 
  Country: None (occurrence: None)
  Receive Date: 20090121
  Receipt Date: 20090121
  Transmission Date: 20090719
  Serious: Yes (Other)
  Sender: FDA-Public Use
  Company Number: None

PATIENT
  Age: 61 Year
  Sex: Male
  Weight: 56.6996 kg

DRUGS (2)
  1. SOMA [Suspect]
     Indication: PAIN
     Dosage: 2 QID PO
     Route: 048
  2. SOMA [Suspect]
     Indication: PAIN
     Dosage: 2 QID PO YEARS
     Route: 048

REACTIONS (2)
  - DRUG INEFFECTIVE [None]
  - PRODUCT QUALITY ISSUE [None]
